FAERS Safety Report 23796607 (Version 2)
Quarter: 2024Q2

REPORT INFORMATION
  Report Type: Spontaneous
  Country: AU (occurrence: AU)
  Receive Date: 20240430
  Receipt Date: 20240510
  Transmission Date: 20240716
  Serious: Yes (Hospitalization)
  Sender: FDA-Public Use
  Company Number: AU-NOVOPROD-1210180

PATIENT
  Age: 48 Year
  Sex: Male

DRUGS (1)
  1. OZEMPIC [Suspect]
     Active Substance: SEMAGLUTIDE
     Indication: Glucose tolerance impaired
     Dosage: UNK START DATE:3 WEEKS (ONCE WEEKLY)

REACTIONS (3)
  - Glomerular filtration rate decreased [Unknown]
  - Urine abnormality [Unknown]
  - Off label use [Unknown]
